FAERS Safety Report 9162955 (Version 2)
Quarter: 2013Q2

REPORT INFORMATION
  Report Type: Spontaneous
  Country: US (occurrence: None)
  Receive Date: 20130222
  Receipt Date: 20130401
  Transmission Date: 20140414
  Serious: Yes (Hospitalization)
  Sender: FDA-Public Use
  Company Number: 2013-0242

PATIENT
  Age: 70 Year
  Sex: Male

DRUGS (2)
  1. KYPROLIS [Suspect]
     Indication: PLASMA CELL MYELOMA
     Dosage: (2 IN 1 WK)
     Route: 042
     Dates: start: 20130116, end: 20130117
  2. DEXAMETHASONE (DEXAMETHASONE) (DEXAMETHASONE) [Concomitant]

REACTIONS (4)
  - Dehydration [None]
  - Influenza [None]
  - Haemoglobin decreased [None]
  - Localised infection [None]
